FAERS Safety Report 9312070 (Version 2)
Quarter: 2013Q2

REPORT INFORMATION
  Report Type: Spontaneous
  Country: US (occurrence: US)
  Receive Date: 20130528
  Receipt Date: 20130605
  Transmission Date: 20140414
  Serious: No
  Sender: FDA-Public Use
  Company Number: US-009507513-1305USA011594

PATIENT
  Age: 48 Year
  Sex: Female

DRUGS (2)
  1. THERAPY UNSPECIFIED [Suspect]
     Dosage: 10 MG, UNK
     Route: 003
     Dates: start: 201305
  2. CLOTRIMAZOLE [Suspect]
     Dosage: UNK

REACTIONS (2)
  - Discomfort [Unknown]
  - Erythema [Unknown]
